FAERS Safety Report 8464737-X (Version None)
Quarter: 2012Q2

REPORT INFORMATION
  Report Type: 
  Country: None (occurrence: None)
  Receive Date: 20120626
  Receipt Date: 20120625
  Transmission Date: 20120825
  Serious: No
  Sender: FDA-Public Use
  Company Number: US-PFIZER INC-2012152520

PATIENT
  Sex: Male
  Weight: 72.562 kg

DRUGS (5)
  1. CHANTIX [Suspect]
     Indication: SMOKING CESSATION THERAPY
     Dosage: 0.5 MG, 1X/DAY
     Route: 048
     Dates: start: 20110101, end: 20110101
  2. DEPAKOTE [Concomitant]
     Indication: CONVULSION
     Dosage: UNK
  3. METOPROLOL [Concomitant]
     Dosage: UNK
  4. GABAPENTIN [Concomitant]
     Dosage: UNK
  5. CHANTIX [Suspect]
     Dosage: UNK
     Route: 048
     Dates: start: 20110101, end: 20110101

REACTIONS (5)
  - FLUSHING [None]
  - SOMNOLENCE [None]
  - FEELING HOT [None]
  - MALAISE [None]
  - HIGH DENSITY LIPOPROTEIN DECREASED [None]
